FAERS Safety Report 5903584-7 (Version None)
Quarter: 2008Q3

REPORT INFORMATION
  Report Type: 
  Country: None (occurrence: None)
  Receive Date: 20080919
  Receipt Date: 20080812
  Transmission Date: 20090109
  Serious: No
  Sender: FDA-Public Use
  Company Number: US-WYE-H05566608

PATIENT
  Sex: Female

DRUGS (1)
  1. PRISTIQ (DESVENLAFAXINE SUCCINATE MONOHYDRATE, [Suspect]
     Dosage: 50 MG 1X PER 1 DAY, ORAL
     Route: 048
     Dates: start: 20080806

REACTIONS (3)
  - COUGH [None]
  - OROPHARYNGEAL PAIN [None]
  - PAIN [None]
